FAERS Safety Report 17603243 (Version 1)
Quarter: 2020Q1

REPORT INFORMATION
  Report Type: Spontaneous
  Country: US (occurrence: US)
  Receive Date: 20200331
  Receipt Date: 20200331
  Transmission Date: 20200409
  Serious: Yes (Other)
  Sender: FDA-Public Use
  Company Number: US-GLAXOSMITHKLINE-US2020AMR055646

PATIENT
  Sex: Male

DRUGS (1)
  1. BENLYSTA [Suspect]
     Active Substance: BELIMUMAB
     Indication: LUPUS-LIKE SYNDROME
     Dosage: 200 MG
     Route: 058
     Dates: start: 2019

REACTIONS (6)
  - Nonspecific reaction [Not Recovered/Not Resolved]
  - Pain [Unknown]
  - Product dose omission [Unknown]
  - Mobility decreased [Unknown]
  - Freezing phenomenon [Unknown]
  - Systemic lupus erythematosus [Unknown]
